FAERS Safety Report 5244143-1 (Version None)
Quarter: 2007Q1

REPORT INFORMATION
  Report Type: 
  Country: None (occurrence: None)
  Receive Date: 20070222
  Receipt Date: 20070214
  Transmission Date: 20070707
  Serious: Yes (Hospitalization)
  Sender: FDA-Public Use
  Company Number: FR-ROCHE-481798

PATIENT
  Age: 59 Year
  Sex: Male
  Weight: 60 kg

DRUGS (11)
  1. ENFUVIRTIDE [Suspect]
     Route: 065
     Dates: start: 20060831
  2. TRUVADA [Suspect]
     Route: 065
     Dates: start: 20060831
  3. EFAVIRENZ [Suspect]
     Route: 065
     Dates: start: 20060831
  4. CORTISONE ACETATE [Concomitant]
     Dates: start: 20061122, end: 20070117
  5. RIFATER [Concomitant]
     Dates: start: 20060728
  6. MYAMBUTOL [Concomitant]
     Dates: start: 20060728
  7. ZECLAR [Concomitant]
     Dates: start: 20060728
  8. CORTANCYL [Concomitant]
     Dates: start: 20060810
  9. RIFINAH [Concomitant]
     Dates: start: 20060615
  10. BACTRIM [Concomitant]
     Dates: start: 20060715
  11. VALACYCLOVIR HCL [Concomitant]
     Dates: start: 20060715

REACTIONS (1)
  - LYMPHADENITIS [None]
